FAERS Safety Report 11067309 (Version 6)
Quarter: 2015Q4

REPORT INFORMATION
  Report Type: Report from Study
  Country: CA (occurrence: CA)
  Receive Date: 20150426
  Receipt Date: 20151128
  Transmission Date: 20160304
  Serious: Yes (Other)
  Sender: FDA-Public Use
  Company Number: PHHY2014CA125739

PATIENT
  Age: 54 Year
  Sex: Male

DRUGS (3)
  1. AFINITOR [Suspect]
     Active Substance: EVEROLIMUS
     Indication: PANCREATIC NEUROENDOCRINE TUMOUR
     Dosage: 10 MG, QD
     Route: 048
     Dates: start: 20140923
  2. SUTENT [Concomitant]
     Active Substance: SUNITINIB MALATE
     Indication: PRODUCT USED FOR UNKNOWN INDICATION
     Dosage: 25 MG, QD
     Route: 048
  3. SANDOSTATIN LAR DEPOT [Suspect]
     Active Substance: OCTREOTIDE ACETATE
     Indication: PANCREATIC NEUROENDOCRINE TUMOUR
     Dosage: 30 MG, QMO
     Route: 030
     Dates: start: 20111129

REACTIONS (24)
  - Cough [Unknown]
  - Hepatic pain [Unknown]
  - Bone pain [Unknown]
  - Diarrhoea [Unknown]
  - Abdominal pain lower [Unknown]
  - Chest discomfort [Unknown]
  - Feeling abnormal [Unknown]
  - Nausea [Unknown]
  - Abdominal mass [Unknown]
  - Malaise [Unknown]
  - Abdominal distension [Unknown]
  - Fatigue [Unknown]
  - Dysphonia [Unknown]
  - Heart rate decreased [Unknown]
  - Polydipsia [Unknown]
  - Needle issue [Unknown]
  - Thirst [Unknown]
  - Apathy [Unknown]
  - Abdominal pain [Unknown]
  - Body temperature decreased [Unknown]
  - Headache [Unknown]
  - Blood pressure increased [Unknown]
  - Arthralgia [Unknown]
  - Asthenia [Unknown]

NARRATIVE: CASE EVENT DATE: 20140923
